FAERS Safety Report 25893948 (Version 1)
Quarter: 2025Q4

REPORT INFORMATION
  Report Type: Spontaneous
  Country: US (occurrence: US)
  Receive Date: 20251008
  Receipt Date: 20251008
  Transmission Date: 20260118
  Serious: No
  Sender: SANDOZ
  Company Number: US-SANDOZ-SDZ2025US072906

PATIENT

DRUGS (2)
  1. ESTRADIOL [Suspect]
     Active Substance: ESTRADIOL
     Indication: Product used for unknown indication
     Dosage: STRENGTH 0.05 MG / 1 10
     Route: 065
  2. ESTRADIOL [Suspect]
     Active Substance: ESTRADIOL
     Dosage: STRENGTH 0.05 MG / 1 10  BIW
     Route: 065

REACTIONS (3)
  - Product use issue [Unknown]
  - Device adhesion issue [Unknown]
  - Suspected product quality issue [Unknown]
